FAERS Safety Report 7235980-2 (Version None)
Quarter: 2011Q1

REPORT INFORMATION
  Report Type: 
  Country: None (occurrence: None)
  Receive Date: 20110120
  Receipt Date: 20110113
  Transmission Date: 20110831
  Serious: Yes (Other)
  Sender: FDA-Public Use
  Company Number: B0694062A

PATIENT
  Sex: Male

DRUGS (7)
  1. VALTREX [Suspect]
     Indication: HERPES ZOSTER
     Dosage: 500MG PER DAY
     Route: 048
     Dates: start: 20110111
  2. HIBERNA [Concomitant]
     Route: 065
  3. RESLIN [Concomitant]
     Route: 048
  4. DEPAKENE [Concomitant]
     Route: 048
  5. HALOPERIDOL [Concomitant]
     Route: 065
  6. CONTOMIN [Concomitant]
     Route: 065
  7. RISPERIDONE [Concomitant]
     Route: 065

REACTIONS (2)
  - PROCEDURAL HYPOTENSION [None]
  - DEPRESSED LEVEL OF CONSCIOUSNESS [None]
